FAERS Safety Report 4979582-7 (Version None)
Quarter: 2006Q2

REPORT INFORMATION
  Report Type: 
  Country: None (occurrence: None)
  Receive Date: 20060421
  Receipt Date: 20050812
  Transmission Date: 20061013
  Serious: Yes (Hospitalization, Disabling)
  Sender: FDA-Public Use
  Company Number: US-ROCHE-414262

PATIENT
  Age: 17 Year
  Sex: Female
  Weight: 45.8 kg

DRUGS (4)
  1. ACCUTANE [Suspect]
     Indication: ACNE
     Route: 048
     Dates: start: 19980713, end: 19990126
  2. ACCUTANE [Suspect]
     Route: 048
     Dates: start: 20000519, end: 20000622
  3. BACTRIM DS [Concomitant]
     Indication: SINUSITIS
     Route: 048
     Dates: start: 19981124
  4. DRYSOL [Concomitant]
     Indication: HYPERHIDROSIS
     Dates: start: 19980713

REACTIONS (80)
  - ABDOMINAL PAIN [None]
  - ABDOMINAL TENDERNESS [None]
  - ANAEMIA [None]
  - ANKYLOSING SPONDYLITIS [None]
  - ANOREXIA [None]
  - ANXIETY [None]
  - ARTHRALGIA [None]
  - ARTHROPOD BITE [None]
  - BACK PAIN [None]
  - BLOOD CHOLESTEROL INCREASED [None]
  - BLOOD GLUCOSE DECREASED [None]
  - BLOOD TRIGLYCERIDES INCREASED [None]
  - BLOOD UREA DECREASED [None]
  - BLOOD URINE PRESENT [None]
  - BONE PAIN [None]
  - C-REACTIVE PROTEIN INCREASED [None]
  - CHEILITIS [None]
  - CHEST DISCOMFORT [None]
  - COLITIS [None]
  - COLITIS ULCERATIVE [None]
  - CROHN'S DISEASE [None]
  - DACRYOSTENOSIS ACQUIRED [None]
  - DEHYDRATION [None]
  - DEPRESSION [None]
  - DIARRHOEA [None]
  - DISEASE RECURRENCE [None]
  - DIZZINESS [None]
  - DRY SKIN [None]
  - EMOTIONAL DISTRESS [None]
  - ENTHESOPATHY [None]
  - ERYTHEMA [None]
  - EYE IRRITATION [None]
  - FAMILY STRESS [None]
  - FATIGUE [None]
  - GASTROINTESTINAL DISORDER [None]
  - GASTROOESOPHAGEAL REFLUX DISEASE [None]
  - HAEMATOCRIT DECREASED [None]
  - HAEMOGLOBIN DECREASED [None]
  - HAEMORRHOIDAL HAEMORRHAGE [None]
  - HAEMORRHOIDS [None]
  - HEPATIC ENZYME INCREASED [None]
  - HYPERMOBILITY SYNDROME [None]
  - IMPAIRED WORK ABILITY [None]
  - INSOMNIA [None]
  - INTESTINAL HAEMORRHAGE [None]
  - LACRIMATION INCREASED [None]
  - LIMB INJURY [None]
  - MEAN CELL HAEMOGLOBIN DECREASED [None]
  - MULTI-ORGAN DISORDER [None]
  - NAUSEA [None]
  - NEUTROPHIL PERCENTAGE INCREASED [None]
  - NIGHT BLINDNESS [None]
  - OCCULT BLOOD POSITIVE [None]
  - OSTEOARTHRITIS [None]
  - PAIN IN EXTREMITY [None]
  - PCO2 DECREASED [None]
  - PERIARTHRITIS [None]
  - PLATELET COUNT INCREASED [None]
  - POUCHITIS [None]
  - PROCTALGIA [None]
  - PROTEIN TOTAL DECREASED [None]
  - PYLORIC STENOSIS [None]
  - PYLOROSPASM [None]
  - RADICULOPATHY [None]
  - RECTAL HAEMORRHAGE [None]
  - RED BLOOD CELL COUNT DECREASED [None]
  - ROAD TRAFFIC ACCIDENT [None]
  - SELF ESTEEM DECREASED [None]
  - SHOULDER PAIN [None]
  - SLEEP DISORDER [None]
  - STRESS AT WORK [None]
  - SYNOVITIS [None]
  - TENDON INJURY [None]
  - TENDONITIS [None]
  - URINE LEUKOCYTE ESTERASE POSITIVE [None]
  - VISION BLURRED [None]
  - VISUAL DISTURBANCE [None]
  - VOMITING [None]
  - WEIGHT DECREASED [None]
  - WHITE BLOOD CELL COUNT INCREASED [None]
